FAERS Safety Report 9174122 (Version 1)
Quarter: 2013Q1

REPORT INFORMATION
  Report Type: Spontaneous
  Country: US (occurrence: US)
  Receive Date: 20130320
  Receipt Date: 20130320
  Transmission Date: 20140127
  Serious: No
  Sender: FDA-Public Use
  Company Number: US-PFIZER INC-2013086902

PATIENT
  Age: 52 Year
  Sex: Female
  Weight: 113.4 kg

DRUGS (4)
  1. PREMARIN [Suspect]
     Indication: VULVOVAGINAL DISCOMFORT
     Dosage: UNK, 2X/WEEK
     Route: 067
  2. LEVOTHYROXINE [Concomitant]
     Indication: THYROID DISORDER
     Dosage: 112 UG, 1X/DAY
  3. LISINOPRIL [Concomitant]
     Indication: HYPERTENSION
     Dosage: 10 MG, 1X/DAY
  4. FUROSEMIDE [Concomitant]
     Dosage: 20 MG, 1X/DAY

REACTIONS (1)
  - Vulvovaginal rash [Unknown]
